FAERS Safety Report 7905002-6 (Version None)
Quarter: 2011Q4

REPORT INFORMATION
  Report Type: 
  Country: None (occurrence: None)
  Receive Date: 20111109
  Receipt Date: 20111102
  Transmission Date: 20120403
  Serious: Yes (Other)
  Sender: FDA-Public Use
  Company Number: PHEH2011US08479

PATIENT
  Sex: Female

DRUGS (5)
  1. GILENYA [Suspect]
     Dosage: 0.5 MG, QD
     Route: 048
     Dates: start: 20110325
  2. BACLOFEN [Concomitant]
     Dosage: UNK UKN, UNK
  3. FLOMAX [Concomitant]
     Dosage: UNK UKN, UNK
  4. OXYBUTYNIN [Concomitant]
     Dosage: UNK UKN, UNK
  5. SIMVASTATIN [Concomitant]
     Dosage: UNK UKN, UNK

REACTIONS (2)
  - BLOOD PRESSURE DECREASED [None]
  - OEDEMA PERIPHERAL [None]
